FAERS Safety Report 21852902 (Version 5)
Quarter: 2023Q4

REPORT INFORMATION
  Report Type: Spontaneous
  Country: US (occurrence: US)
  Receive Date: 20230112
  Receipt Date: 20231110
  Transmission Date: 20240110
  Serious: Yes (Other)
  Sender: FDA-Public Use
  Company Number: US-BRISTOL-MYERS SQUIBB COMPANY-2023-004772

PATIENT
  Age: 75 Year
  Sex: Female
  Weight: 63.05 kg

DRUGS (4)
  1. REVLIMID [Suspect]
     Active Substance: LENALIDOMIDE
     Indication: Plasma cell myeloma
     Route: 048
  2. REVLIMID [Suspect]
     Active Substance: LENALIDOMIDE
     Route: 048
     Dates: start: 20221101
  3. REVLIMID [Suspect]
     Active Substance: LENALIDOMIDE
     Dosage: QD HS D1-217DOFF
     Route: 048
  4. REVLIMID [Suspect]
     Active Substance: LENALIDOMIDE
     Dosage: QD HS D1-217DOFF
     Route: 048

REACTIONS (6)
  - Respiratory syncytial virus infection [Unknown]
  - Intentional product use issue [Unknown]
  - Fatigue [Unknown]
  - Thrombosis [Unknown]
  - Renal disorder [Unknown]
  - Plasma cell myeloma recurrent [Unknown]
